FAERS Safety Report 16826882 (Version 1)
Quarter: 2019Q3

REPORT INFORMATION
  Report Type: Spontaneous
  Country: US (occurrence: US)
  Receive Date: 20190919
  Receipt Date: 20190919
  Transmission Date: 20191005
  Serious: No
  Sender: FDA-Public Use
  Company Number: US-ASTRAZENECA-2019SF32440

PATIENT
  Sex: Female

DRUGS (1)
  1. LYNPARZA [Suspect]
     Active Substance: OLAPARIB
     Indication: OVARIAN CANCER
     Dosage: UNK
     Route: 048
     Dates: start: 2015

REACTIONS (2)
  - Drug ineffective [Not Recovered/Not Resolved]
  - Anaemia [Not Recovered/Not Resolved]
